FAERS Safety Report 19778460 (Version 1)
Quarter: 2021Q3

REPORT INFORMATION
  Report Type: Spontaneous
  Country: US (occurrence: US)
  Receive Date: 20210902
  Receipt Date: 20210902
  Transmission Date: 20211014
  Serious: Yes (Hospitalization, Other)
  Sender: FDA-Public Use
  Company Number: US-BAYER-2021-202145

PATIENT
  Age: 54 Year
  Sex: Female

DRUGS (5)
  1. SENNA [Concomitant]
     Active Substance: SENNA LEAF\SENNOSIDES\SENNOSIDES A AND B
     Indication: LAXATIVE SUPPORTIVE CARE
  2. TREPROSTINIL SODIUM [Concomitant]
     Active Substance: TREPROSTINIL SODIUM
     Indication: PULMONARY ARTERIAL HYPERTENSION
     Dosage: 2.5 UNK
     Route: 058
     Dates: start: 20210730
  3. COLACE [Concomitant]
     Active Substance: DOCUSATE SODIUM
     Indication: LAXATIVE SUPPORTIVE CARE
  4. MIRALAX [Suspect]
     Active Substance: POLYETHYLENE GLYCOL 3350
     Indication: LAXATIVE SUPPORTIVE CARE
     Dosage: UNK
     Dates: start: 20210730
  5. LACTULOSE. [Concomitant]
     Active Substance: LACTULOSE
     Indication: LAXATIVE SUPPORTIVE CARE

REACTIONS (8)
  - Hypertensive crisis [Unknown]
  - Infusion site pain [Unknown]
  - Diarrhoea [Unknown]
  - Infusion site haemorrhage [Unknown]
  - Sickle cell anaemia [Unknown]
  - Headache [Unknown]
  - Pain in extremity [Unknown]
  - Infusion site discharge [Unknown]

NARRATIVE: CASE EVENT DATE: 2021
